FAERS Safety Report 8613484-X (Version None)
Quarter: 2012Q3

REPORT INFORMATION
  Report Type: 
  Country: None (occurrence: None)
  Receive Date: 20120823
  Receipt Date: 20120808
  Transmission Date: 20120928
  Serious: Yes (Hospitalization, Disabling, Other)
  Sender: FDA-Public Use
  Company Number: US-009507513-1203USA03293

PATIENT

DRUGS (11)
  1. EPINEPHRINE [Concomitant]
     Route: 058
  2. PREDNISONE TAB [Concomitant]
  3. FOSAMAX [Suspect]
     Indication: OSTEOPOROSIS
  4. VITAMIN D [Concomitant]
     Dosage: UNK UNK, QD
     Route: 048
     Dates: start: 19920101
  5. ZYRTEC [Concomitant]
     Dosage: 10 MG, HS
  6. FOSAMAX [Suspect]
     Indication: OSTEOPENIA
     Dosage: 70 MG, UNK
     Route: 048
     Dates: start: 20020101
  7. FOSAMAX [Suspect]
     Dosage: UNK
     Dates: start: 20080213, end: 20090717
  8. CALCIUM (UNSPECIFIED) [Concomitant]
     Dosage: 1500 MG, QD
     Route: 048
     Dates: start: 19920101
  9. BENADRYL [Concomitant]
  10. ZOLOFT [Concomitant]
  11. NASACORT AQ [Concomitant]
     Dosage: 1-2 SPRAYS EA NOSTRIL QD

REACTIONS (31)
  - TRANSIENT ISCHAEMIC ATTACK [None]
  - HYPOTENSION [None]
  - BLADDER SPASM [None]
  - HIP FRACTURE [None]
  - OSTEOPOROSIS [None]
  - DYSURIA [None]
  - COLON POLYPECTOMY [None]
  - SINUSITIS [None]
  - FALL [None]
  - LOW TURNOVER OSTEOPATHY [None]
  - DEVICE FAILURE [None]
  - ARTHRALGIA [None]
  - STRESS FRACTURE [None]
  - DIABETES MELLITUS [None]
  - HYPERLIPIDAEMIA [None]
  - MAMMOGRAM ABNORMAL [None]
  - GALLBLADDER DISORDER [None]
  - CONTUSION [None]
  - FRACTURE DELAYED UNION [None]
  - PYREXIA [None]
  - IMPAIRED HEALING [None]
  - OSTEOARTHRITIS [None]
  - ATROPHIC VULVOVAGINITIS [None]
  - BREAST MASS [None]
  - CATARACT [None]
  - GASTROOESOPHAGEAL REFLUX DISEASE [None]
  - FEMUR FRACTURE [None]
  - HAEMOGLOBIN DECREASED [None]
  - BREAST DISORDER [None]
  - FOOT FRACTURE [None]
  - FATIGUE [None]
